FAERS Safety Report 5477415-6 (Version None)
Quarter: 2007Q4

REPORT INFORMATION
  Report Type: 
  Country: None (occurrence: None)
  Receive Date: 20071004
  Receipt Date: 20070925
  Transmission Date: 20080405
  Serious: Yes (Other)
  Sender: FDA-Public Use
  Company Number: GB-PFIZER INC-2007080479

PATIENT
  Age: 57 Year
  Sex: Female
  Weight: 67 kg

DRUGS (13)
  1. CHAMPIX [Suspect]
     Indication: SMOKING CESSATION THERAPY
     Route: 048
     Dates: start: 20070717, end: 20070826
  2. AMITRIPTYLINE HCL [Concomitant]
     Route: 048
  3. ASPIRIN [Concomitant]
     Route: 048
  4. BETAHISTINE [Concomitant]
     Route: 048
  5. CHLORPROMAZINE [Concomitant]
     Route: 048
  6. DIHYDROCODEINE BITARTRATE INJ [Concomitant]
     Route: 048
  7. DOMPERIDONE [Concomitant]
     Route: 048
  8. ESTRADIOL [Concomitant]
     Route: 048
  9. FUROSEMIDE [Concomitant]
     Route: 048
  10. LANSOPRAZOLE [Concomitant]
     Route: 048
  11. NORETHINDRONE ACETATE [Concomitant]
     Route: 048
  12. PARACETAMOL [Concomitant]
     Route: 048
  13. SIMVASTATIN [Concomitant]
     Route: 048

REACTIONS (1)
  - VAGINAL HAEMORRHAGE [None]
